FAERS Safety Report 5032816-5 (Version None)
Quarter: 2006Q2

REPORT INFORMATION
  Report Type: 
  Country: None (occurrence: None)
  Receive Date: 20060622
  Receipt Date: 20060614
  Transmission Date: 20061013
  Serious: Yes (Other)
  Sender: FDA-Public Use
  Company Number: PHBS2006BR09126

PATIENT
  Age: 55 Year
  Sex: Female
  Weight: 69.8 kg

DRUGS (2)
  1. LUDIOMIL [Suspect]
     Indication: DEPRESSION
     Dosage: 25 MG, BID
     Route: 048
  2. OLCADIL [Suspect]
     Indication: ANXIETY
     Dosage: 2 MG, BID
     Route: 048

REACTIONS (4)
  - BURSITIS [None]
  - DEPRESSION [None]
  - NAUSEA [None]
  - SURGERY [None]
